FAERS Safety Report 18928385 (Version 1)
Quarter: 2021Q1

REPORT INFORMATION
  Report Type: Spontaneous
  Country: US (occurrence: US)
  Receive Date: 20210223
  Receipt Date: 20210223
  Transmission Date: 20210420
  Serious: No
  Sender: FDA-Public Use
  Company Number: None

PATIENT
  Age: 48 Year
  Sex: Female
  Weight: 114.75 kg

DRUGS (30)
  1. BOTOX [Concomitant]
     Active Substance: ONABOTULINUMTOXINA
  2. DOXYCYCLINE. [Concomitant]
     Active Substance: DOXYCYCLINE
  3. ALLEGRA [Concomitant]
     Active Substance: FEXOFENADINE HYDROCHLORIDE
  4. VITAMIN C [Concomitant]
     Active Substance: ASCORBIC ACID
  5. I METHYLFOLATE [Concomitant]
  6. VITAMIN B12 [Concomitant]
     Active Substance: CYANOCOBALAMIN
  7. FLEXERIL [Concomitant]
     Active Substance: CYCLOBENZAPRINE HYDROCHLORIDE
  8. FOLIC ACID. [Concomitant]
     Active Substance: FOLIC ACID
  9. TYLENOL PM [Concomitant]
     Active Substance: ACETAMINOPHEN\DIPHENHYDRAMINE
  10. VITAMIN D3 [Concomitant]
     Active Substance: CHOLECALCIFEROL
  11. ZINC. [Concomitant]
     Active Substance: ZINC
  12. EMGALITY [Suspect]
     Active Substance: GALCANEZUMAB-GNLM
     Indication: MIGRAINE
     Dosage: ?          QUANTITY:1 INJECTION(S);OTHER FREQUENCY:EVERY 28?29 DAYS;?
     Route: 058
  13. B3 [Concomitant]
  14. MAGNESIUM [Concomitant]
     Active Substance: MAGNESIUM
  15. ALBUTEROL INHALER [Concomitant]
     Active Substance: ALBUTEROL
  16. POTASSIUM CHLORIDE PRAZOSIN [Concomitant]
  17. DOCUSATE [Concomitant]
     Active Substance: DOCUSATE
  18. TYLENOL [Concomitant]
     Active Substance: ACETAMINOPHEN
  19. TRIAMTERENE. [Concomitant]
     Active Substance: TRIAMTERENE
  20. BIOTIN [Concomitant]
     Active Substance: BIOTIN
  21. REGLAN [Concomitant]
     Active Substance: METOCLOPRAMIDE HYDROCHLORIDE
  22. TORADOL [Concomitant]
     Active Substance: KETOROLAC TROMETHAMINE
  23. EPIPEN [Concomitant]
     Active Substance: EPINEPHRINE
  24. CALCIUM [Concomitant]
     Active Substance: CALCIUM
  25. SYNTHROID [Concomitant]
     Active Substance: LEVOTHYROXINE SODIUM
  26. CPAP MACHINE [Concomitant]
  27. VANICREAM [Concomitant]
     Active Substance: TITANIUM DIOXIDE\ZINC OXIDE
  28. LASIX [Concomitant]
     Active Substance: FUROSEMIDE
  29. IBUPROFEN. [Concomitant]
     Active Substance: IBUPROFEN
  30. VITAMIN B6 [Concomitant]
     Active Substance: PYRIDOXINE HYDROCHLORIDE

REACTIONS (5)
  - Weight increased [None]
  - Lymphadenopathy [None]
  - Withdrawal syndrome [None]
  - Swelling face [None]
  - Soft tissue swelling [None]

NARRATIVE: CASE EVENT DATE: 20210119
